FAERS Safety Report 10591157 (Version 1)
Quarter: 2014Q4

REPORT INFORMATION
  Report Type: Spontaneous
  Country: IT (occurrence: IT)
  Receive Date: 20141118
  Receipt Date: 20141118
  Transmission Date: 20150529
  Serious: Yes (Other)
  Sender: FDA-Public Use
  Company Number: IT-OTSUKA-US-2014-13850

PATIENT

DRUGS (4)
  1. ALKERAN [Suspect]
     Active Substance: MELPHALAN
     Indication: STEM CELL TRANSPLANT
     Dosage: 90 MG MILLIGRAM(S), DAILY DOSE
     Route: 042
     Dates: start: 20140616, end: 20140617
  2. GEMCITABINE ACCORD [Suspect]
     Active Substance: GEMCITABINE HYDROCHLORIDE
     Indication: STEM CELL TRANSPLANT
     Dosage: 2865 MG MILLIGRAM(S), CYCLICAL
     Route: 042
     Dates: start: 20140611, end: 20140616
  3. VELCADE [Suspect]
     Active Substance: BORTEZOMIB
     Indication: STEM CELL TRANSPLANT
     Dosage: 2 MG MILLIGRAM(S), CYCLICAL
     Route: 058
     Dates: start: 20140611, end: 20140616
  4. BUSULFEX [Suspect]
     Active Substance: BUSULFAN
     Indication: STEM CELL TRANSPLANT
     Dosage: 160 MG MILLIGRAM(S), DAILY DOSE
     Route: 042
     Dates: start: 20140612, end: 20140616

REACTIONS (5)
  - Off label use [Unknown]
  - Vulvovaginal injury [Recovered/Resolved]
  - Erythema [Recovered/Resolved]
  - Gastrointestinal inflammation [Recovered/Resolved]
  - Skin exfoliation [Recovered/Resolved]

NARRATIVE: CASE EVENT DATE: 20140617
